FAERS Safety Report 17875497 (Version 1)
Quarter: 2020Q2

REPORT INFORMATION
  Report Type: Spontaneous
  Country: US (occurrence: US)
  Receive Date: 20200609
  Receipt Date: 20200609
  Transmission Date: 20200714
  Serious: Yes (Hospitalization, Other)
  Sender: FDA-Public Use
  Company Number: US-ELI_LILLY_AND_COMPANY-US202006003209

PATIENT
  Age: 64 Year
  Sex: Female

DRUGS (6)
  1. LAMOTRIGINE. [Concomitant]
     Active Substance: LAMOTRIGINE
  2. BUPROPION. [Concomitant]
     Active Substance: BUPROPION
  3. AMIODARONE [Concomitant]
     Active Substance: AMIODARONE
  4. DULOXETINE HYDROCHLORIDE. [Suspect]
     Active Substance: DULOXETINE HYDROCHLORIDE
     Indication: PRODUCT USED FOR UNKNOWN INDICATION
     Dosage: UNK, UNKNOWN
     Route: 065
  5. PREGABALIN. [Concomitant]
     Active Substance: PREGABALIN
  6. METOPROLOL. [Concomitant]
     Active Substance: METOPROLOL

REACTIONS (3)
  - Endocarditis [Unknown]
  - Neuropathy peripheral [Unknown]
  - Serotonin syndrome [Recovered/Resolved]
